FAERS Safety Report 6980261-5 (Version None)
Quarter: 2010Q3

REPORT INFORMATION
  Report Type: 
  Country: None (occurrence: None)
  Receive Date: 20100914
  Receipt Date: 20100901
  Transmission Date: 20110219
  Serious: Yes (Hospitalization)
  Sender: FDA-Public Use
  Company Number: US-ELI_LILLY_AND_COMPANY-US201009000678

PATIENT
  Sex: Female

DRUGS (9)
  1. ZYPREXA [Suspect]
     Indication: SCHIZOPHRENIA, PARANOID TYPE
     Dosage: 5 MG, DAILY (1/D)
     Dates: end: 20100604
  2. ZYPREXA [Suspect]
     Dosage: 10 MG, DAILY (1/D)
     Dates: start: 20100726
  3. ZYPREXA [Suspect]
     Dosage: 5 MG, DAILY (1/D)
  4. LEVOTHYROXINE SODIUM [Concomitant]
  5. LISINOPRIL [Concomitant]
  6. VENLAFAXINE [Concomitant]
  7. EVISTA [Concomitant]
  8. SIMVASTATIN [Concomitant]
  9. SEROQUEL [Concomitant]
     Dates: start: 20100604

REACTIONS (8)
  - ABNORMAL BEHAVIOUR [None]
  - AGGRESSION [None]
  - AGORAPHOBIA [None]
  - DECREASED APPETITE [None]
  - DRUG INEFFECTIVE [None]
  - FEAR [None]
  - FEELING ABNORMAL [None]
  - SCHIZOPHRENIA [None]
